FAERS Safety Report 4631221-0 (Version None)
Quarter: 2005Q2

REPORT INFORMATION
  Report Type: 
  Country: None (occurrence: None)
  Receive Date: 20050406
  Receipt Date: 20011211
  Transmission Date: 20051028
  Serious: No
  Sender: FDA-Public Use
  Company Number: 3319

PATIENT
  Sex: Female

DRUGS (2)
  1. MUCOMYST [Suspect]
     Indication: PROPHYLAXIS
     Dosage: 600 MG PO
     Route: 048
  2. MUCOMYST [Suspect]
     Indication: RENAL DISORDER
     Dosage: 600 MG PO
     Route: 048

REACTIONS (2)
  - HYPERSENSITIVITY [None]
  - SKIN DISORDER [None]
